FAERS Safety Report 13737715 (Version 2)
Quarter: 2018Q2

REPORT INFORMATION
  Report Type: Spontaneous
  Country: US (occurrence: US)
  Receive Date: 20170710
  Receipt Date: 20180627
  Transmission Date: 20180711
  Serious: Yes (Other)
  Sender: FDA-Public Use
  Company Number: US-SAOL THERAPEUTICS-2016SAO00599

PATIENT
  Age: 16 Year
  Weight: 41.9 kg

DRUGS (2)
  1. LIORESAL [Suspect]
     Active Substance: BACLOFEN
     Indication: MUSCLE SPASTICITY
     Dosage: 620.7 ?G, \DAY
     Route: 037
  2. LIORESAL [Suspect]
     Active Substance: BACLOFEN
     Indication: CEREBRAL PALSY
     Dosage: 96 ?G, \DAY
     Route: 037
     Dates: start: 20170921

REACTIONS (6)
  - Abnormal behaviour [Unknown]
  - Fall [Unknown]
  - Device damage [Recovered/Resolved]
  - Muscle spasticity [Unknown]
  - Implant site extravasation [Unknown]
  - Complication associated with device [Unknown]

NARRATIVE: CASE EVENT DATE: 201602
